FAERS Safety Report 6146793-7 (Version None)
Quarter: 2009Q2

REPORT INFORMATION
  Report Type: 
  Country: None (occurrence: None)
  Receive Date: 20090407
  Receipt Date: 20090327
  Transmission Date: 20091009
  Serious: Yes (Other)
  Sender: FDA-Public Use
  Company Number: US-SANOFI-SYNTHELABO-A03200804386

PATIENT
  Sex: Female

DRUGS (8)
  1. KLONOPIN [Concomitant]
     Indication: PANIC ATTACK
     Route: 065
     Dates: start: 20080108
  2. REMERON [Concomitant]
     Indication: DEPRESSION
     Route: 065
     Dates: start: 20081001, end: 20090215
  3. LAMICTAL [Concomitant]
     Indication: DEPRESSION
     Route: 065
     Dates: start: 20071024
  4. SEROQUEL [Concomitant]
     Indication: BIPOLAR DISORDER
     Route: 065
     Dates: start: 20080813
  5. AMBIEN [Suspect]
     Indication: INSOMNIA
     Dosage: ONE OR TWO TABLETS AT BEDTIME
     Route: 048
     Dates: start: 20070801, end: 20081029
  6. AMBIEN [Suspect]
     Indication: ANXIETY
     Dosage: ONE OR TWO TABLETS AT BEDTIME
     Route: 048
     Dates: start: 20070801, end: 20081029
  7. AMBIEN [Suspect]
     Indication: BIPOLAR DISORDER
     Dosage: ONE OR TWO TABLETS AT BEDTIME
     Route: 048
     Dates: start: 20070801, end: 20081029
  8. AMBIEN CR [Suspect]
     Route: 048
     Dates: start: 20081001, end: 20081028

REACTIONS (6)
  - BALANCE DISORDER [None]
  - CONFUSIONAL STATE [None]
  - DRUG ABUSE [None]
  - IMPAIRED DRIVING ABILITY [None]
  - ROAD TRAFFIC ACCIDENT [None]
  - SOMNAMBULISM [None]
